FAERS Safety Report 6851804-7 (Version None)
Quarter: 2010Q3

REPORT INFORMATION
  Report Type: 
  Country: None (occurrence: None)
  Receive Date: 20100717
  Receipt Date: 20071030
  Transmission Date: 20110219
  Serious: No
  Sender: FDA-Public Use
  Company Number: US-PFIZER INC-2007093306

PATIENT
  Sex: Female

DRUGS (6)
  1. CHANTIX [Suspect]
  2. SPIRIVA [Concomitant]
  3. ZOCOR [Concomitant]
  4. NASONEX [Concomitant]
  5. ACETYLSALICYLIC ACID [Concomitant]
  6. ALBUTEROL [Concomitant]

REACTIONS (2)
  - HEADACHE [None]
  - PRURITUS [None]
